FAERS Safety Report 8788264 (Version 2)
Quarter: 2015Q2

REPORT INFORMATION
  Report Type: Report from Study
  Country: US (occurrence: US)
  Receive Date: 20120915
  Receipt Date: 20150616
  Transmission Date: 20150821
  Serious: Yes (Death)
  Sender: FDA-Public Use
  Company Number: US-ROCHE-1126286

PATIENT
  Sex: Male
  Weight: 70.45 kg

DRUGS (10)
  1. DEXAMETHASONE. [Concomitant]
     Active Substance: DEXAMETHASONE
     Route: 042
  2. AVASTIN [Suspect]
     Active Substance: BEVACIZUMAB
     Indication: PROSTATE CANCER
     Dosage: 23/APR/2007, 07/MAY/2007, 14/MAY/2007, 21/MAY/2007, 29/MAY/2007
     Route: 042
     Dates: start: 200406
  3. TAXOL [Concomitant]
     Active Substance: PACLITAXEL
     Route: 042
  4. DIPHENHYDRAMINE [Concomitant]
     Active Substance: DIPHENHYDRAMINE
     Route: 042
  5. AVASTIN [Suspect]
     Active Substance: BEVACIZUMAB
     Indication: BONE CANCER
     Dosage: 25/FEB/2008, 10/MAR/2008, 24/MAR/2008, 14/APR/2008, 28/APR/2008
     Route: 042
  6. CARBOPLATIN. [Concomitant]
     Active Substance: CARBOPLATIN
     Route: 042
  7. CIMETIDINE [Concomitant]
     Active Substance: CIMETIDINE
     Route: 042
  8. TRELSTAR [Concomitant]
     Active Substance: TRIPTORELIN PAMOATE
  9. AVASTIN [Suspect]
     Active Substance: BEVACIZUMAB
     Indication: BONE CANCER
  10. ALOXI [Concomitant]
     Active Substance: PALONOSETRON HYDROCHLORIDE
     Route: 042

REACTIONS (4)
  - Death [Fatal]
  - Off label use [Unknown]
  - Pain [Unknown]
  - Fatigue [Unknown]
